FAERS Safety Report 9765117 (Version 1)
Quarter: 2013Q4

REPORT INFORMATION
  Report Type: Spontaneous
  Country: US (occurrence: None)
  Receive Date: 20131213
  Receipt Date: 20131213
  Transmission Date: 20140711
  Serious: Yes (Other)
  Sender: FDA-Public Use
  Company Number: 2013SA030461

PATIENT
  Age: 44 Year
  Sex: Male

DRUGS (1)
  1. ICY HOT [Suspect]
     Indication: PRODUCT USED FOR UNKNOWN INDICATION
     Route: 061
     Dates: start: 20090517

REACTIONS (6)
  - Scab [None]
  - Myalgia [None]
  - Application site vesicles [None]
  - Application site burn [None]
  - Skin burning sensation [None]
  - Product label issue [None]
